FAERS Safety Report 8851426 (Version 2)
Quarter: 2012Q4

REPORT INFORMATION
  Report Type: 
  Country: DE (occurrence: DE)
  Receive Date: 20121021
  Receipt Date: 20121119
  Transmission Date: 20130627
  Serious: Yes (Hospitalization)
  Sender: FDA-Public Use
  Company Number: DE-ABBOTT-12P-062-0995898-00

PATIENT
  Sex: Male

DRUGS (3)
  1. HUMIRA [Suspect]
     Indication: ANKYLOSING SPONDYLITIS
     Route: 058
     Dates: start: 20111219, end: 20120909
  2. HUMIRA [Suspect]
     Route: 058
     Dates: start: 20121021
  3. IBUPROFEN [Concomitant]
     Indication: PRODUCT USED FOR UNKNOWN INDICATION

REACTIONS (6)
  - Ileus [Unknown]
  - Diverticulitis [Recovered/Resolved]
  - Diverticulum [Unknown]
  - Laboratory test abnormal [Unknown]
  - Arthralgia [Unknown]
  - Back pain [Unknown]
